FAERS Safety Report 5005959-X (Version None)
Quarter: 2006Q2

REPORT INFORMATION
  Report Type: 
  Country: None (occurrence: None)
  Receive Date: 20060517
  Receipt Date: 20060517
  Transmission Date: 20061013
  Serious: Yes (Hospitalization)
  Sender: FDA-Public Use
  Company Number: None

PATIENT
  Sex: Male

DRUGS (11)
  1. WARFARIN SODIUM [Suspect]
     Indication: DEEP VEIN THROMBOSIS
     Dosage: 1.5 MG DAILY PO
     Route: 048
     Dates: start: 20051107, end: 20060120
  2. SIMVASTATIN [Concomitant]
  3. PSYLLIUM [Concomitant]
  4. POTASSIUM CHLORIDE [Concomitant]
  5. OMEPRAZOLE [Concomitant]
  6. NIACIN [Concomitant]
  7. LOPERAMIDE [Concomitant]
  8. FERROUS SULFATE TAB [Concomitant]
  9. CITALOPRAM HYDROBROMIDE [Concomitant]
  10. APAP TAB [Concomitant]
  11. CYANOCOBALAMIN [Concomitant]

REACTIONS (2)
  - FAECES DISCOLOURED [None]
  - RECTAL HAEMORRHAGE [None]
